FAERS Safety Report 13949602 (Version 1)
Quarter: 2017Q3

REPORT INFORMATION
  Report Type: Spontaneous
  Country: US (occurrence: US)
  Receive Date: 20170908
  Receipt Date: 20170908
  Transmission Date: 20171128
  Serious: No
  Sender: FDA-Public Use
  Company Number: US-ROCHE-1178327

PATIENT
  Sex: Male

DRUGS (1)
  1. RITUXAN [Suspect]
     Active Substance: RITUXIMAB
     Indication: NON-HODGKIN^S LYMPHOMA
     Dosage: THE COMBINATION OF 500 MG AND 100 MG VIAL AT 50 MG/HOUR.
     Route: 065

REACTIONS (2)
  - Infusion related reaction [Unknown]
  - Product quality issue [Unknown]
